FAERS Safety Report 10189317 (Version 1)
Quarter: 2014Q2

REPORT INFORMATION
  Report Type: Spontaneous
  Country: US (occurrence: US)
  Receive Date: 20140522
  Receipt Date: 20140522
  Transmission Date: 20141212
  Serious: Yes (Hospitalization)
  Sender: FDA-Public Use
  Company Number: US-ASTRAZENECA-2014SE34504

PATIENT
  Age: 37 Year
  Sex: Male
  Weight: 80.3 kg

DRUGS (7)
  1. SEROQUEL [Suspect]
     Indication: DEPRESSION
     Route: 048
     Dates: start: 2010, end: 2011
  2. SEROQUEL [Suspect]
     Indication: DEPRESSION
     Route: 048
     Dates: start: 201310, end: 201405
  3. SEROQUEL [Suspect]
     Indication: DEPRESSION
     Route: 048
     Dates: start: 201405
  4. TRAZADONE [Concomitant]
     Route: 048
     Dates: start: 201405
  5. LEXAPRO [Concomitant]
     Route: 048
     Dates: start: 201405
  6. VISTARIL [Concomitant]
     Dosage: 25 MG Q8H PRN
     Route: 048
     Dates: start: 201405
  7. COGENTIN [Concomitant]
     Dosage: 1 MG Q4H PRN
     Route: 048
     Dates: start: 201405

REACTIONS (2)
  - Depression [Recovering/Resolving]
  - Muscle spasms [Not Recovered/Not Resolved]
